FAERS Safety Report 5967439-4 (Version None)
Quarter: 2008Q4

REPORT INFORMATION
  Report Type: 
  Country: None (occurrence: None)
  Receive Date: 20081125
  Receipt Date: 20081120
  Transmission Date: 20090506
  Serious: Yes (Hospitalization, Other)
  Sender: FDA-Public Use
  Company Number: DE-ABBOTT-08P-062-0488851-00

PATIENT
  Age: 44 Year
  Weight: 104 kg

DRUGS (5)
  1. HUMIRA [Suspect]
     Indication: PSORIATIC ARTHROPATHY
     Route: 058
     Dates: end: 20080901
  2. METHOTREXATE [Concomitant]
     Indication: PSORIATIC ARTHROPATHY
     Dates: start: 20080701, end: 20080901
  3. METAMIZOLE [Concomitant]
     Indication: DRUG USE FOR UNKNOWN INDICATION
     Dosage: 4X40GGT
     Route: 048
  4. PANTOPRAZOLE SODIUM [Concomitant]
     Indication: DRUG USE FOR UNKNOWN INDICATION
     Dosage: 1-0-0
     Route: 048
  5. IBUPROFEN TABLETS [Concomitant]
     Indication: PAIN
     Dosage: AS REQUIRED
     Route: 048

REACTIONS (4)
  - DIVERTICULUM INTESTINAL [None]
  - LARGE INTESTINE PERFORATION [None]
  - PERITONITIS [None]
  - POST PROCEDURAL CONSTIPATION [None]
